FAERS Safety Report 12468168 (Version 2)
Quarter: 2016Q2

REPORT INFORMATION
  Report Type: Spontaneous
  Country: US (occurrence: US)
  Receive Date: 20160615
  Receipt Date: 20160630
  Transmission Date: 20160815
  Serious: No
  Sender: FDA-Public Use
  Company Number: GXBR2016US001558

PATIENT
  Sex: Male

DRUGS (1)
  1. GLATOPA [Suspect]
     Active Substance: GLATIRAMER ACETATE
     Indication: PRODUCT USED FOR UNKNOWN INDICATION
     Dosage: 20 MG/ML, UNK
     Route: 065

REACTIONS (5)
  - Pain [Unknown]
  - Flatulence [Unknown]
  - Drug ineffective [Not Recovered/Not Resolved]
  - Chest pain [Unknown]
  - Abdominal distension [Unknown]
